FAERS Safety Report 5376754-7 (Version None)
Quarter: 2007Q3

REPORT INFORMATION
  Report Type: 
  Country: None (occurrence: None)
  Receive Date: 20070703
  Receipt Date: 20070627
  Transmission Date: 20080115
  Serious: Yes (Other)
  Sender: FDA-Public Use
  Company Number: PHEH2007US08728

PATIENT

DRUGS (1)
  1. ENABLEX [Suspect]
     Indication: HYPERTONIC BLADDER

REACTIONS (4)
  - BLADDER CATHETERISATION [None]
  - SURGERY [None]
  - URINARY RETENTION [None]
  - URINARY TRACT OBSTRUCTION [None]
